FAERS Safety Report 8096009-X (Version None)
Quarter: 2012Q1

REPORT INFORMATION
  Report Type: 
  Country: None (occurrence: None)
  Receive Date: 20120129
  Receipt Date: 20111225
  Transmission Date: 20120608
  Serious: No
  Sender: FDA-Public Use
  Company Number: US-ABBOTT-11P-163-0887045-00

PATIENT
  Age: 56 Year
  Sex: Female

DRUGS (2)
  1. LAMICTAL [Concomitant]
     Indication: CONVULSION
     Dates: start: 20090101
  2. HUMIRA [Suspect]
     Indication: RHEUMATOID ARTHRITIS
     Dates: start: 20111124

REACTIONS (3)
  - UPPER RESPIRATORY TRACT CONGESTION [None]
  - NASAL CONGESTION [None]
  - EAR DISCOMFORT [None]
